FAERS Safety Report 6621494-7 (Version None)
Quarter: 2010Q1

REPORT INFORMATION
  Report Type: 
  Country: None (occurrence: None)
  Receive Date: 20100309
  Receipt Date: 20100224
  Transmission Date: 20100710
  Serious: Yes (Other)
  Sender: FDA-Public Use
  Company Number: TR-TYCO HEALTHCARE/MALLINCKRODT-T201000699

PATIENT
  Age: 5 Year
  Sex: Male

DRUGS (1)
  1. TOFRANIL [Suspect]
     Indication: ATTENTION DEFICIT/HYPERACTIVITY DISORDER
     Dosage: 10 MG, QD

REACTIONS (2)
  - OFF LABEL USE [None]
  - THROMBOCYTOPENIA [None]
